FAERS Safety Report 9261420 (Version 2)
Quarter: 2013Q2

REPORT INFORMATION
  Report Type: Spontaneous
  Country: AU (occurrence: AU)
  Receive Date: 20130429
  Receipt Date: 20130605
  Transmission Date: 20140414
  Serious: Yes (Life-Threatening, Hospitalization)
  Sender: FDA-Public Use
  Company Number: AU-B.I. PHARMACEUTICALS,INC./RIDGEFIELD-2013-AU-00503AU

PATIENT
  Age: 93 Year
  Sex: Male
  Weight: 78 kg

DRUGS (7)
  1. PRADAXA [Suspect]
     Indication: ATRIAL FIBRILLATION
     Dosage: 220 MG
     Dates: start: 201106, end: 20130324
  2. EDRONAX [Concomitant]
  3. FOSAMAX [Concomitant]
  4. IMOVANE [Concomitant]
  5. KARVEA [Concomitant]
  6. PREDNISOLONE [Concomitant]
  7. SOMAC [Concomitant]

REACTIONS (2)
  - Haemothorax [Recovered/Resolved]
  - Dyspnoea [Recovered/Resolved]
